FAERS Safety Report 25725801 (Version 2)
Quarter: 2025Q3

REPORT INFORMATION
  Report Type: Spontaneous
  Country: US (occurrence: US)
  Receive Date: 20250826
  Receipt Date: 20250922
  Transmission Date: 20251020
  Serious: Yes (Death, Other)
  Sender: GLAXOSMITHKLINE
  Company Number: US-GLAXOSMITHKLINE INC-US2025AMR104247

PATIENT
  Age: 63 Year
  Sex: Male

DRUGS (1)
  1. NUCALA [Suspect]
     Active Substance: MEPOLIZUMAB
     Indication: Illness
     Dosage: 100 MG, Q4W

REACTIONS (3)
  - Death [Fatal]
  - Lung neoplasm malignant [Fatal]
  - Respiratory failure [Fatal]

NARRATIVE: CASE EVENT DATE: 20250808
